FAERS Safety Report 4318688-2 (Version None)
Quarter: 2004Q1

REPORT INFORMATION
  Report Type: 
  Country: None (occurrence: None)
  Receive Date: 20040318
  Receipt Date: 20040312
  Transmission Date: 20041129
  Serious: Yes (Other)
  Sender: FDA-Public Use
  Company Number: GB-BRISTOL-MYERS SQUIBB COMPANY-12531745

PATIENT
  Age: 57 Year
  Sex: Female

DRUGS (1)
  1. TRAZODONE HCL [Suspect]
     Indication: DEPRESSION

REACTIONS (2)
  - DRUG WITHDRAWAL SYNDROME [None]
  - ELECTROCARDIOGRAM ABNORMAL [None]
